FAERS Safety Report 4348129-0 (Version None)
Quarter: 2004Q2

REPORT INFORMATION
  Report Type: 
  Country: None (occurrence: None)
  Receive Date: 20040422
  Receipt Date: 20040318
  Transmission Date: 20050107
  Serious: Yes (Other)
  Sender: FDA-Public Use
  Company Number: EM2004-0160

PATIENT
  Age: 39 Year
  Sex: Female

DRUGS (4)
  1. TOBI [Suspect]
     Indication: CYSTIC FIBROSIS
     Dosage: 300 MG, BID, RESPIRATORY
     Route: 055
  2. PANZYTRAT (PANCREATIN) [Concomitant]
  3. VITAMIN A [Concomitant]
  4. VITAMIN E [Concomitant]

REACTIONS (1)
  - RASH PRURITIC [None]
